FAERS Safety Report 18308160 (Version 1)
Quarter: 2020Q3

REPORT INFORMATION
  Report Type: Report from Study
  Country: IT (occurrence: IT)
  Receive Date: 20200924
  Receipt Date: 20200924
  Transmission Date: 20201103
  Serious: Yes (Other)
  Sender: FDA-Public Use
  Company Number: IT-MYLANLABS-2020M1081132

PATIENT
  Age: 7 Decade
  Sex: Male

DRUGS (11)
  1. VINCRISTINE [Suspect]
     Active Substance: VINCRISTINE
     Indication: HODGKIN^S DISEASE
     Dosage: RECEIVED ON EVERY DAY 8; ACCORDING TO BEACOPP PROTOCOL (AT STANDARD DOSES).
     Route: 065
  2. BLEOMYCIN [Suspect]
     Active Substance: BLEOMYCIN SULFATE
     Indication: HODGKIN^S DISEASE
     Dosage: RECEIVED EVERY DAY 8; ACCORDING TO BEACOPP PROTOCOL (AT STANDARD DOSES).
     Route: 065
  3. CARBOPLATIN. [Suspect]
     Active Substance: CARBOPLATIN
     Indication: HODGKIN^S DISEASE
     Dosage: RECEIVED EVERY DAYS 1?4; ACCORDING TO MICMA PROTOCOL.
     Route: 065
  4. MITOXANTRONE [Suspect]
     Active Substance: MITOXANTRONE HYDROCHLORIDE
     Indication: HODGKIN^S DISEASE
     Dosage: RECEIVED ON DAY 1; ACCORDING TO MICMA PROTOCOL.
     Route: 065
  5. CYCLOPHOSPHAMIDE. [Suspect]
     Active Substance: CYCLOPHOSPHAMIDE
     Indication: HODGKIN^S DISEASE
     Dosage: RECEIVED EVERY DAY 1; ACCORDING TO BEACOPP PROTOCOL (AT STANDARD DOSES).
     Route: 065
  6. ETOPOSIDE. [Suspect]
     Active Substance: ETOPOSIDE
     Indication: HODGKIN^S DISEASE
     Dosage: RECEIVED EVERY DAY 1?3; ACCORDING TO BEACOPP PROTOCOL (AT STANDARD DOSES).
     Route: 065
  7. PROCARBAZINE [Suspect]
     Active Substance: PROCARBAZINE
     Indication: HODGKIN^S DISEASE
     Dosage: RECEIVED ON DAYS 1?7; ACCORDING TO BEACOPP PROTOCOL (AT STANDARD DOSES).
     Route: 048
  8. PREDNISONE. [Suspect]
     Active Substance: PREDNISONE
     Indication: HODGKIN^S DISEASE
     Dosage: RECEIVED ON DAYS 1?14;ACCORDING TO BEACOPP PROTOCOL (AT STANDARD DOSES).
     Route: 048
  9. DOXORUBICIN [Suspect]
     Active Substance: DOXORUBICIN
     Indication: HODGKIN^S DISEASE
     Dosage: RECEIVED EVERY DAY 1; ACCORDING TO BEACOPP PROTOCOL (AT STANDARD DOSES).
     Route: 065
  10. CYTOSINE ARABINOSIDE [Suspect]
     Active Substance: CYTARABINE
     Indication: HODGKIN^S DISEASE
     Dosage: RECEIVED EVERY DAY 5; ACCORDING TO MICMA PROTOCOL.
     Route: 065
  11. METHYLPREDNISOLONE. [Suspect]
     Active Substance: METHYLPREDNISOLONE
     Indication: HODGKIN^S DISEASE
     Dosage: RECEIVED EVERY DAYS 1?5; ACCORDING TO MICMA PROTOCOL.
     Route: 065

REACTIONS (1)
  - Peyronie^s disease [Recovering/Resolving]
